FAERS Safety Report 21295600 (Version 2)
Quarter: 2022Q4

REPORT INFORMATION
  Report Type: Spontaneous
  Country: US (occurrence: US)
  Receive Date: 20220906
  Receipt Date: 20221012
  Transmission Date: 20230112
  Serious: No
  Sender: FDA-Public Use
  Company Number: US-JNJFOC-20220847350

PATIENT
  Age: 34 Year
  Sex: Male
  Weight: 64.014 kg

DRUGS (1)
  1. TREMFYA [Suspect]
     Active Substance: GUSELKUMAB
     Indication: Psoriasis
     Route: 058

REACTIONS (5)
  - Product dose omission issue [Unknown]
  - Device issue [Unknown]
  - Drug ineffective [Unknown]
  - Psoriasis [Unknown]
  - Skin mass [Unknown]
